FAERS Safety Report 20280583 (Version 1)
Quarter: 2022Q1

REPORT INFORMATION
  Report Type: Spontaneous
  Country: US (occurrence: None)
  Receive Date: 20220101
  Receipt Date: 20220101
  Transmission Date: 20220423
  Serious: No
  Sender: FDA-Public Use
  Company Number: None

PATIENT
  Age: 73 Year
  Sex: Female
  Weight: 56.25 kg

DRUGS (9)
  1. RECLAST [Suspect]
     Active Substance: ZOLEDRONIC ACID
     Indication: Osteoporosis
     Dosage: OTHER FREQUENCY : ANNUALLY;?
     Route: 042
     Dates: start: 20211129, end: 20211129
  2. RAMIPRIL [Concomitant]
     Active Substance: RAMIPRIL
  3. ZETIA [Concomitant]
     Active Substance: EZETIMIBE
  4. NOVOLOG [Concomitant]
     Active Substance: INSULIN ASPART
  5. SYMLIN [Concomitant]
     Active Substance: PRAMLINTIDE ACETATE
  6. Dexcom Insulin [Concomitant]
  7. LOW DOSE ASPIRIN [Concomitant]
     Active Substance: ASPIRIN
  8. CALCIUM [Concomitant]
     Active Substance: CALCIUM
  9. VITAMIN D [Concomitant]
     Active Substance: VITAMIN D NOS

REACTIONS (3)
  - Vertigo [None]
  - Dizziness [None]
  - Balance disorder [None]

NARRATIVE: CASE EVENT DATE: 20211130
